FAERS Safety Report 7288299-8 (Version None)
Quarter: 2011Q1

REPORT INFORMATION
  Report Type: 
  Country: None (occurrence: None)
  Receive Date: 20110211
  Receipt Date: 20110201
  Transmission Date: 20110831
  Serious: Yes (Hospitalization, Other)
  Sender: FDA-Public Use
  Company Number: US-JNJFOC-20101206157

PATIENT
  Sex: Male
  Weight: 142.88 kg

DRUGS (2)
  1. STELARA [Suspect]
     Indication: PSORIASIS
     Dosage: APPROXIMATELY 4 TOTAL INJECTIONS
     Route: 058
  2. METHOTREXATE [Concomitant]
     Indication: PSORIASIS

REACTIONS (4)
  - UPPER RESPIRATORY TRACT INFECTION [None]
  - DRUG DOSE OMISSION [None]
  - MYOCARDIAL INFARCTION [None]
  - MALAISE [None]
